FAERS Safety Report 10217110 (Version 3)
Quarter: 2014Q2

REPORT INFORMATION
  Report Type: Spontaneous
  Country: US (occurrence: US)
  Receive Date: 20140604
  Receipt Date: 20140618
  Transmission Date: 20141212
  Serious: Yes (Other)
  Sender: FDA-Public Use
  Company Number: US-BIOMARINAP-US-2014-103281

PATIENT
  Sex: Female
  Weight: 67 kg

DRUGS (3)
  1. KUVAN [Suspect]
     Indication: PHENYLKETONURIA
     Dosage: 1300 MG, QD
     Route: 048
     Dates: start: 20140521
  2. PRENATAL VITAMINS                  /01549301/ [Concomitant]
     Indication: PREGNANCY
  3. EXPECTA LIPIL [Concomitant]
     Indication: PRODUCT USED FOR UNKNOWN INDICATION

REACTIONS (3)
  - Abortion spontaneous [Recovered/Resolved]
  - Vaginal haemorrhage [Unknown]
  - Exposure during pregnancy [Recovered/Resolved]
